FAERS Safety Report 17651430 (Version 1)
Quarter: 2020Q2

REPORT INFORMATION
  Report Type: Report from Study
  Country: DE (occurrence: DE)
  Receive Date: 20200409
  Receipt Date: 20200409
  Transmission Date: 20200713
  Serious: Yes (Other)
  Sender: FDA-Public Use
  Company Number: DE-TEVA-2020-DE-1219421

PATIENT
  Age: 42 Year
  Sex: Male

DRUGS (10)
  1. VENLAFAXINE [Suspect]
     Active Substance: VENLAFAXINE HYDROCHLORIDE
     Indication: MAJOR DEPRESSION
     Dosage: 300 MILLIGRAM DAILY;
     Route: 065
  2. PERAZINE [Suspect]
     Active Substance: PERAZINE
     Indication: MAJOR DEPRESSION
     Dosage: 200 MILLIGRAM DAILY;
     Route: 065
  3. METOPROLOL. [Concomitant]
     Active Substance: METOPROLOL
     Indication: ESSENTIAL HYPERTENSION
     Route: 065
  4. TRIMIPRAMIN [Suspect]
     Active Substance: TRIMIPRAMINE
     Indication: MAJOR DEPRESSION
     Dosage: 50 MILLIGRAM DAILY;
     Route: 065
  5. INSULIN LISPRO [Concomitant]
     Active Substance: INSULIN LISPRO
     Indication: TYPE 1 DIABETES MELLITUS
     Route: 065
  6. PIPAMPERONE [Suspect]
     Active Substance: PIPAMPERONE
     Indication: MAJOR DEPRESSION
     Dosage: 60 MILLIGRAM DAILY;
     Route: 065
  7. PANTOPRAZOLE [Concomitant]
     Active Substance: PANTOPRAZOLE
     Route: 065
  8. RAMIPRIL. [Concomitant]
     Active Substance: RAMIPRIL
     Indication: ESSENTIAL HYPERTENSION
     Route: 065
  9. LANTUS [Concomitant]
     Active Substance: INSULIN GLARGINE
     Indication: TYPE 1 DIABETES MELLITUS
     Route: 065
  10. INSULIN GLARGIN [Concomitant]
     Active Substance: INSULIN GLARGINE
     Indication: TYPE 1 DIABETES MELLITUS
     Route: 065

REACTIONS (1)
  - Drug-induced liver injury [Recovered/Resolved]
